FAERS Safety Report 5500796-1 (Version None)
Quarter: 2007Q4

REPORT INFORMATION
  Report Type: 
  Country: None (occurrence: None)
  Receive Date: 20071029
  Receipt Date: 20071025
  Transmission Date: 20080405
  Serious: Yes (Other)
  Sender: FDA-Public Use
  Company Number: A0689819A

PATIENT
  Age: 56 Year
  Sex: Male

DRUGS (7)
  1. ADVAIR DISKUS 100/50 [Suspect]
     Indication: ASTHMA
     Dosage: 1PUFF TWICE PER DAY
     Route: 055
  2. ALBUTEROL [Concomitant]
  3. BETA BLOCKER [Concomitant]
  4. IBUPROFEN [Concomitant]
  5. KETOPROFEN [Concomitant]
  6. ALPHA BLOCKER [Concomitant]
  7. FLOVENT [Concomitant]

REACTIONS (2)
  - COUGH [None]
  - PNEUMONIA [None]
